FAERS Safety Report 13838455 (Version 1)
Quarter: 2017Q3

REPORT INFORMATION
  Report Type: Spontaneous
  Country: US (occurrence: US)
  Receive Date: 20170807
  Receipt Date: 20170807
  Transmission Date: 20171127
  Serious: No
  Sender: FDA-Public Use
  Company Number: US-IROKO PHARMACEUTICALS LLC-US-I09001-16-00165

PATIENT
  Sex: Female

DRUGS (2)
  1. INDOMETHACIN AMBIGUOUS [Suspect]
     Active Substance: INDOMETHACIN
     Indication: SCLERITIS
     Route: 065
     Dates: start: 201608, end: 2016
  2. RANITIDINE. [Concomitant]
     Active Substance: RANITIDINE
     Indication: SCLERITIS
     Route: 065
     Dates: start: 201608, end: 2016

REACTIONS (1)
  - Drug ineffective for unapproved indication [Unknown]
